FAERS Safety Report 9341297 (Version 1)
Quarter: 2013Q2

REPORT INFORMATION
  Report Type: Spontaneous
  Country: US (occurrence: None)
  Receive Date: 20130610
  Receipt Date: 20130610
  Transmission Date: 20140414
  Serious: Yes (Other)
  Sender: FDA-Public Use
  Company Number: None

PATIENT
  Age: 42 Year
  Sex: Female
  Weight: 58.97 kg

DRUGS (5)
  1. METHYLPHENIDATE ER [Suspect]
     Dosage: 1 TABLET EVERY MORNING QAM
     Route: 048
     Dates: start: 20130524, end: 20130609
  2. CYMBALTA [Concomitant]
  3. PROVIGIL [Concomitant]
  4. LEVOTHYROXINE [Concomitant]
  5. VITAMIN D3 [Concomitant]

REACTIONS (4)
  - Drug ineffective [None]
  - Disturbance in attention [None]
  - Fatigue [None]
  - Product substitution issue [None]
